FAERS Safety Report 16047704 (Version 5)
Quarter: 2020Q1

REPORT INFORMATION
  Report Type: Spontaneous
  Country: US (occurrence: US)
  Receive Date: 20190307
  Receipt Date: 20200213
  Transmission Date: 20200409
  Serious: Yes (Death, Hospitalization, Other)
  Sender: FDA-Public Use
  Company Number: US-LEXICON PHARMACEUTICALS, INC-19-1606-00251

PATIENT
  Age: 76 Year
  Sex: Male

DRUGS (4)
  1. IRON INFUSION [Concomitant]
     Active Substance: IRON
  2. TELOTRISTAT ETHYL [Suspect]
     Active Substance: TELOTRISTAT ETHYL
     Indication: CARCINOID TUMOUR OF THE SMALL BOWEL
     Route: 048
     Dates: start: 20180502
  3. TELOTRISTAT ETHYL [Suspect]
     Active Substance: TELOTRISTAT ETHYL
     Route: 048
  4. MYCOPHENOLATE [Concomitant]
     Active Substance: MYCOPHENOLIC ACID

REACTIONS (6)
  - Dialysis [Unknown]
  - Diarrhoea [Recovering/Resolving]
  - Death [Fatal]
  - Kidney transplant rejection [Not Recovered/Not Resolved]
  - Constipation [Unknown]
  - Hospitalisation [Unknown]

NARRATIVE: CASE EVENT DATE: 201902
